FAERS Safety Report 7432158-4 (Version None)
Quarter: 2011Q2

REPORT INFORMATION
  Report Type: 
  Country: None (occurrence: None)
  Receive Date: 20110422
  Receipt Date: 20110414
  Transmission Date: 20111010
  Serious: Yes (Hospitalization)
  Sender: FDA-Public Use
  Company Number: PHHO2011US06745

PATIENT
  Sex: Male
  Weight: 266 kg

DRUGS (10)
  1. BLINDED ALISKIREN [Suspect]
     Dosage: BLINDED
     Route: 048
     Dates: start: 20101116, end: 20110412
  2. ALISKIREN [Suspect]
     Indication: CARDIAC FAILURE
  3. BLINDED NO TREATMENT RECEIVED [Suspect]
     Dosage: BLINDED
     Route: 048
     Dates: start: 20101116, end: 20110412
  4. ALDACTONE [Concomitant]
     Indication: CARDIAC FAILURE CONGESTIVE
     Dosage: 25 MG, QD
     Route: 048
     Dates: start: 20091113
  5. BUMEX [Concomitant]
     Indication: CARDIAC FAILURE CONGESTIVE
     Dosage: 2 MG, BID
     Route: 048
     Dates: start: 20101206
  6. ASPIRIN [Concomitant]
     Indication: ANTIPLATELET THERAPY
  7. COMPARATOR ENALAPRIL [Suspect]
     Indication: CARDIAC FAILURE
  8. BLINDED ENALAPRIL [Suspect]
     Dosage: BLINDED
     Route: 048
     Dates: start: 20101116, end: 20110412
  9. DIGOXIN [Concomitant]
     Indication: CARDIAC FAILURE
     Dosage: 0.125 MG, QD
     Route: 048
     Dates: start: 20101102
  10. COREG [Concomitant]
     Indication: CARDIAC FAILURE CONGESTIVE
     Dosage: 25 MG, BID
     Route: 048
     Dates: start: 20091113

REACTIONS (2)
  - HYPOTENSION [None]
  - VOMITING [None]
